FAERS Safety Report 21384375 (Version 1)
Quarter: 2022Q3

REPORT INFORMATION
  Report Type: Spontaneous
  Country: US (occurrence: US)
  Receive Date: 20220928
  Receipt Date: 20220928
  Transmission Date: 20221026
  Serious: No
  Sender: FDA-Public Use
  Company Number: US-AMGEN-USASP2022161164

PATIENT
  Age: 25 Year
  Sex: Male
  Weight: 116.51 kg

DRUGS (15)
  1. LUMAKRAS [Suspect]
     Active Substance: SOTORASIB
     Indication: Soft tissue sarcoma
     Dosage: 960 MILLIGRAM, QD
     Route: 048
     Dates: start: 20220816
  2. NEULASTA [Suspect]
     Active Substance: PEGFILGRASTIM
     Indication: Prophylaxis
     Dosage: UNK
     Route: 065
  3. ONDANSETRON [Concomitant]
     Active Substance: ONDANSETRON
     Dosage: 8 MILLIGRAM
     Route: 048
  4. ONDANSETRON [Concomitant]
     Active Substance: ONDANSETRON
     Dosage: 8 MILLIGRAM, Q8H
     Route: 048
  5. PROMETHAZINE [Concomitant]
     Active Substance: PROMETHAZINE HYDROCHLORIDE
     Indication: Nausea
     Dosage: 12.5 MILLIGRAM, Q6H
     Route: 048
  6. PROMETHAZINE [Concomitant]
     Active Substance: PROMETHAZINE HYDROCHLORIDE
     Indication: Vomiting
  7. ACETAMINOPHEN\HYDROCODONE [Concomitant]
     Active Substance: ACETAMINOPHEN\HYDROCODONE
     Dosage: 5-325 MG
     Route: 048
  8. IBUPROFEN [Concomitant]
     Active Substance: IBUPROFEN
     Dosage: 800 MILLIGRAM, AS NECESSARY
     Route: 048
  9. POTASSIUM CHLORIDE [Concomitant]
     Active Substance: POTASSIUM CHLORIDE
     Indication: Hypokalaemia
     Dosage: 20 MILLIEQUIVALENT, QD
     Route: 048
  10. LIDOCAINE AND PRILOCAINE [Concomitant]
     Active Substance: LIDOCAINE\PRILOCAINE
     Dosage: 2.5 %-2.5 %, QD
     Route: 061
  11. OLANZAPINE [Concomitant]
     Active Substance: OLANZAPINE
     Indication: Nausea
     Dosage: 2.5 MILLIGRAM, QD
     Route: 048
  12. GEMCITABINE [Concomitant]
     Active Substance: GEMCITABINE
     Indication: Soft tissue sarcoma
     Dosage: 2000 MILLIGRAM
     Route: 042
     Dates: start: 20220830
  13. DOCETAXEL [Concomitant]
     Active Substance: DOCETAXEL
     Indication: Soft tissue sarcoma
     Dosage: 233 MILLIGRAM
     Route: 040
     Dates: start: 20220830
  14. ZIEXTENZO [Concomitant]
     Active Substance: PEGFILGRASTIM-BMEZ
     Dosage: 6 MILLIGRAM
     Route: 058
  15. DEXAMETHASONE [Concomitant]
     Active Substance: DEXAMETHASONE
     Dosage: 8 MILLIGRAM, BID
     Route: 048

REACTIONS (5)
  - Off label use [Unknown]
  - Alopecia [Unknown]
  - Rash papular [Unknown]
  - Vomiting [Unknown]
  - Fatigue [Unknown]

NARRATIVE: CASE EVENT DATE: 20220816
